FAERS Safety Report 7544448-5 (Version None)
Quarter: 2011Q2

REPORT INFORMATION
  Report Type: 
  Country: None (occurrence: None)
  Receive Date: 20110613
  Receipt Date: 20090703
  Transmission Date: 20111010
  Serious: Yes (Death)
  Sender: FDA-Public Use
  Company Number: PHHY2008JP26184

PATIENT
  Sex: Male

DRUGS (10)
  1. ASPIRIN [Concomitant]
     Dosage: 100 MG, UNK
     Route: 048
     Dates: start: 20030701, end: 20070502
  2. ENALAPRIL MALEATE [Concomitant]
     Dosage: 5 MG, UNK
     Route: 048
     Dates: start: 20030624
  3. CYCLOPHOSPHAMIDE [Concomitant]
     Dosage: 100 MG, UNK
     Route: 048
     Dates: start: 20030918, end: 20070321
  4. ALLOPURINOL [Concomitant]
     Dosage: 10 MG, UNK
     Route: 048
     Dates: start: 20030825, end: 20070329
  5. ZOLEDRONIC ACID [Suspect]
     Indication: MULTIPLE MYELOMA
     Dosage: 4 MG, ONCE/SINGLE
     Route: 042
     Dates: start: 20070220, end: 20070220
  6. FAMOTIDINE [Concomitant]
     Indication: GASTRITIS PROPHYLAXIS
     Dosage: 40 MG, UNK
     Route: 048
     Dates: start: 20041125
  7. MARZULENE S [Concomitant]
     Dosage: 3 DF, UNK
     Route: 048
     Dates: start: 20040729
  8. AMARYL [Concomitant]
     Dosage: 0.5 MG, UNK
     Route: 048
     Dates: start: 20021111, end: 20070523
  9. RHYTHMY [Concomitant]
     Dosage: 2 MG, UNK
     Route: 048
     Dates: start: 20031016, end: 20070525
  10. PERDIPINE [Concomitant]
     Dosage: 40 MG, UNK
     Route: 048
     Dates: start: 20021111

REACTIONS (3)
  - MYELODYSPLASTIC SYNDROME [None]
  - PNEUMONIA [None]
  - MULTIPLE MYELOMA [None]
